FAERS Safety Report 6612290-5 (Version None)
Quarter: 2010Q1

REPORT INFORMATION
  Report Type: 
  Country: None (occurrence: None)
  Receive Date: 20100303
  Receipt Date: 20100222
  Transmission Date: 20100710
  Serious: Yes (Other)
  Sender: FDA-Public Use
  Company Number: GB-ROCHE-680914

PATIENT
  Sex: Male
  Weight: 88.8 kg

DRUGS (16)
  1. TOCILIZUMAB [Suspect]
     Indication: RHEUMATOID ARTHRITIS
     Dosage: FORM REPORTED AS INFUSION SOLUTION
     Route: 042
     Dates: start: 20060101
  2. TOCILIZUMAB [Suspect]
     Dosage: DRUG TEMPORIRILY INTERRUPTED IN MAY 2009, FORM REPORTED AS INFUSION SOLUTION
     Route: 042
     Dates: start: 20060621, end: 20090501
  3. TOCILIZUMAB [Suspect]
     Dosage: LAST DOSE PRIOR TO SAE: 26 JUNE 2009. PERMANENTLY DISCOTINUED.
     Route: 042
     Dates: end: 20100101
  4. METHOTREXATE [Suspect]
     Indication: RHEUMATOID ARTHRITIS
     Dosage: THE PATIENT WAS PREVIOUSLY ENROLLED IN WA18062
     Route: 065
  5. PLACEBO [Suspect]
     Indication: RHEUMATOID ARTHRITIS
     Dosage: THE PATIENT WAS PREVIOUSLY ENROLLED IN WA18062
     Route: 065
  6. FOLIC ACID [Concomitant]
     Dates: start: 19990101
  7. FOLIC ACID [Concomitant]
     Dates: start: 20070611
  8. PREDNISOLONE [Concomitant]
     Dates: start: 20031024
  9. PREDNISOLONE [Concomitant]
     Dates: start: 20061222
  10. CALCICHEW [Concomitant]
     Dates: start: 19991203
  11. CALCICHEW [Concomitant]
     Dates: start: 20040116
  12. ASPIRIN [Concomitant]
     Dates: start: 20080822
  13. SIMVASTATIN [Concomitant]
     Dates: start: 20080822
  14. NEXIUM [Concomitant]
     Dates: start: 20050526
  15. PARACETAMOL [Concomitant]
     Dates: start: 20051208
  16. CITALOPRAM HYDROBROMIDE [Concomitant]
     Dates: start: 20061024

REACTIONS (1)
  - LUNG NEOPLASM [None]
